FAERS Safety Report 19612668 (Version 7)
Quarter: 2022Q2

REPORT INFORMATION
  Report Type: Report from Study
  Country: BE (occurrence: BE)
  Receive Date: 20210727
  Receipt Date: 20220408
  Transmission Date: 20220721
  Serious: Yes (Hospitalization)
  Sender: FDA-Public Use
  Company Number: BE-ABBVIE-21K-013-4006980-00

PATIENT
  Age: 76 Year
  Sex: Female
  Weight: 69 kg

DRUGS (29)
  1. CARBIDOPA\LEVODOPA [Suspect]
     Active Substance: CARBIDOPA\LEVODOPA
     Indication: Parkinson^s disease
     Route: 050
     Dates: start: 20120529
  2. CARBIDOPA\LEVODOPA [Suspect]
     Active Substance: CARBIDOPA\LEVODOPA
     Dosage: MD 2.0 ML, CD 1.0 ML/H, ED 0.8 ML, DURING 16 HRS
     Route: 050
     Dates: start: 20200515
  3. CARBIDOPA\LEVODOPA [Suspect]
     Active Substance: CARBIDOPA\LEVODOPA
     Dosage: MD 0.5 ML, CD 1.0 ML/H, ED 0.8 ML, DURING 16 HRS
     Route: 050
     Dates: start: 20210725, end: 20210802
  4. CARBIDOPA\LEVODOPA [Suspect]
     Active Substance: CARBIDOPA\LEVODOPA
     Dosage: MD 0.0 ML, CD 0.8 ML/H, ED 0.4 ML, DURING 16 HRS
     Route: 050
     Dates: start: 20210802, end: 20210811
  5. CARBIDOPA\LEVODOPA [Suspect]
     Active Substance: CARBIDOPA\LEVODOPA
     Dosage: MD 0.2 ML, CD 0.9 ML/H, ED 0.4 ML, DURING 16 HOURS
     Route: 050
     Dates: start: 20210811, end: 20220119
  6. CARBIDOPA\LEVODOPA [Suspect]
     Active Substance: CARBIDOPA\LEVODOPA
     Dosage: MD 0.2 ML, CD 1.1 ML/H, ED 0.8 ML, DURING 16 HOURS
     Route: 050
     Dates: start: 20220119, end: 20220404
  7. CARBIDOPA\LEVODOPA [Suspect]
     Active Substance: CARBIDOPA\LEVODOPA
     Dosage: MD 0.4 ML, CD 1.2 ML/H, ED 0.8 ML, DURING 16 HOURS
     Route: 050
     Dates: start: 20220404
  8. BENSERAZIDE\LEVODOPA [Concomitant]
     Active Substance: BENSERAZIDE\LEVODOPA
     Indication: Product used for unknown indication
     Dosage: AT 22H
  9. BENSERAZIDE\LEVODOPA [Concomitant]
     Active Substance: BENSERAZIDE\LEVODOPA
     Dosage: IF NECESSARY, MAXIMUM 3 PER DAY
  10. BENSERAZIDE\LEVODOPA [Concomitant]
     Active Substance: BENSERAZIDE\LEVODOPA
     Dosage: 1/4?AT 12H, 19H
  11. BENSERAZIDE\LEVODOPA [Concomitant]
     Active Substance: BENSERAZIDE\LEVODOPA
  12. BENSERAZIDE\LEVODOPA [Concomitant]
     Active Substance: BENSERAZIDE\LEVODOPA
     Dosage: 1 CO?AT 21H
  13. BENSERAZIDE\LEVODOPA [Concomitant]
     Active Substance: BENSERAZIDE\LEVODOPA
     Dosage: 1?AT BEDTIME
  14. STALEVO [Concomitant]
     Active Substance: CARBIDOPA\ENTACAPONE\LEVODOPA
     Indication: Product used for unknown indication
     Dosage: AT 7-10-14-17H
  15. SEROSTAT [Concomitant]
     Indication: Product used for unknown indication
     Dosage: AT 16H
  16. TRAZODONE HYDROCHLORIDE [Concomitant]
     Active Substance: TRAZODONE HYDROCHLORIDE
     Indication: Product used for unknown indication
     Dosage: AT 20H
  17. TRAZODONE HYDROCHLORIDE [Concomitant]
     Active Substance: TRAZODONE HYDROCHLORIDE
     Dosage: 1 CO?AT 21H
  18. TRAZODONE HYDROCHLORIDE [Concomitant]
     Active Substance: TRAZODONE HYDROCHLORIDE
     Dosage: 1 CO?AT BEDTIME
  19. Effortil drop [Concomitant]
     Indication: Product used for unknown indication
  20. MOVICOL [Concomitant]
     Active Substance: POLYETHYLENE GLYCOL 3350\POTASSIUM CHLORIDE\SODIUM BICARBONATE\SODIUM CHLORIDE
     Indication: Product used for unknown indication
     Dosage: 1 SACHET IN THE MORNING
  21. MOVICOL [Concomitant]
     Active Substance: POLYETHYLENE GLYCOL 3350\POTASSIUM CHLORIDE\SODIUM BICARBONATE\SODIUM CHLORIDE
     Dosage: 1 SACHET PER DAY IF NECESSARY
  22. ESOMEPRAZOLE [Concomitant]
     Active Substance: ESOMEPRAZOLE
     Indication: Product used for unknown indication
     Dosage: 1 CO?IN THE MORNING
  23. ESOMEPRAZOLE [Concomitant]
     Active Substance: ESOMEPRAZOLE
     Dosage: 1 CO?UPON GETTING UP
  24. PAROXETINE [Concomitant]
     Active Substance: PAROXETINE
     Indication: Product used for unknown indication
     Dosage: 1 CO?AT DINNER
  25. XANAX [Concomitant]
     Active Substance: ALPRAZOLAM
     Indication: Product used for unknown indication
  26. XANAX [Concomitant]
     Active Substance: ALPRAZOLAM
  27. DAFALGAN [Concomitant]
     Active Substance: ACETAMINOPHEN
     Indication: Product used for unknown indication
     Dosage: MAXIMUM 4 TIMES PER DAY
  28. ETILEFRINE HYDROCHLORIDE [Concomitant]
     Active Substance: ETILEFRINE HYDROCHLORIDE
     Indication: Product used for unknown indication
  29. VENLAFAXINE [Concomitant]
     Active Substance: VENLAFAXINE HYDROCHLORIDE
     Indication: Product used for unknown indication
     Dosage: 1 CO?AT NOON

REACTIONS (10)
  - General physical health deterioration [Not Recovered/Not Resolved]
  - Wrong technique in device usage process [Recovered/Resolved]
  - On and off phenomenon [Not Recovered/Not Resolved]
  - Dyskinesia [Recovering/Resolving]
  - Freezing phenomenon [Not Recovered/Not Resolved]
  - Device dislocation [Recovered/Resolved]
  - Device issue [Unknown]
  - Autonomic nervous system imbalance [Unknown]
  - On and off phenomenon [Unknown]
  - Fall [Unknown]

NARRATIVE: CASE EVENT DATE: 20210101
